FAERS Safety Report 9159753 (Version 1)
Quarter: 2013Q1

REPORT INFORMATION
  Report Type: Spontaneous
  Country: US (occurrence: US)
  Receive Date: 20130313
  Receipt Date: 20130313
  Transmission Date: 20140127
  Serious: Yes (Hospitalization)
  Sender: FDA-Public Use
  Company Number: US-ELI_LILLY_AND_COMPANY-US201303001477

PATIENT
  Sex: Male

DRUGS (18)
  1. FORTEO [Suspect]
     Indication: OSTEOPOROSIS
     Dosage: 20 UG, QD
     Dates: start: 201109, end: 201212
  2. FORTEO [Suspect]
     Dosage: 20 UG, QD
     Dates: start: 201301
  3. CICLOSPORIN [Concomitant]
     Dosage: 25 MG, BID EACH MORNING AND AT NIGHT
  4. MYCOPHENOLATE MOFETIL [Concomitant]
     Dosage: 250 MG, BID EACH MORNING AND AT NIGHT
  5. PREDNISONE [Concomitant]
     Dosage: 10 MG, EACH MORNING
  6. ASPIRIN [Concomitant]
     Dosage: 81 MG, EACH MORNING
  7. CITALOPRAM [Concomitant]
     Dosage: 20 MG, EACH MORNING
  8. METOPROLOL [Concomitant]
     Indication: HYPERTENSION
     Dosage: 75 MG, EACH MORNING
  9. CALTRATE                           /00944201/ [Concomitant]
     Dosage: 600 MG, BID EACH MORNING AND AT NIGHT
  10. AGGRENOX [Concomitant]
     Indication: CEREBROVASCULAR ACCIDENT PROPHYLAXIS
     Dosage: 25 MG, BID EACH MORNING AND AT NIGHT
  11. ESOMEPRAZOLE [Concomitant]
     Dosage: 40 MG, EACH MORNING
  12. AMLODIPINE [Concomitant]
     Dosage: 5 MG, 3/W
  13. FLUCONAZOLE [Concomitant]
     Dosage: 200 MG, AT NIGHT
  14. RAMIPRIL [Concomitant]
     Dosage: 5 MG, AT NIGHT
  15. DONEPEZIL [Concomitant]
     Dosage: 5 MG, AT NIGHT
  16. MIRTAZAPINE [Concomitant]
     Dosage: 15 MG, AT NIGHT
  17. VITAMIN D [Concomitant]
     Dosage: 800 MG, AT NIGHT
  18. ATORVASTATIN [Concomitant]
     Dosage: 20 MG, AT NIGHT

REACTIONS (7)
  - Meningitis fungal [Recovered/Resolved]
  - Pneumonia [Recovered/Resolved]
  - Cerebrovascular accident [Recovered/Resolved with Sequelae]
  - Fall [Unknown]
  - Fall [Unknown]
  - Pain [Unknown]
  - Medication error [Unknown]
